FAERS Safety Report 5732351-2 (Version None)
Quarter: 2008Q2

REPORT INFORMATION
  Report Type: 
  Country: None (occurrence: None)
  Receive Date: 20080508
  Receipt Date: 20080502
  Transmission Date: 20081010
  Serious: No
  Sender: FDA-Public Use
  Company Number: US-BOEHRINGER INGELHEIM GMBH, GERMANY-2008-BP-05771BP

PATIENT
  Age: 28 Year
  Sex: Female

DRUGS (6)
  1. MIRAPEX [Suspect]
     Indication: RESTLESS LEGS SYNDROME
  2. METHADONE HCL [Concomitant]
  3. VICODIN [Concomitant]
  4. TRAZODONE HCL [Concomitant]
  5. VALTREX [Concomitant]
  6. NEXIUM [Concomitant]

REACTIONS (2)
  - LIBIDO DECREASED [None]
  - PATHOLOGICAL GAMBLING [None]
